FAERS Safety Report 10418964 (Version 1)
Quarter: 2014Q2

REPORT INFORMATION
  Report Type: Spontaneous
  Country: US (occurrence: None)
  Receive Date: 20140617
  Receipt Date: 20140617
  Transmission Date: 20141212
  Serious: Yes (Other)
  Sender: FDA-Public Use
  Company Number: USW201305-000060

PATIENT
  Age: 77 Year
  Sex: Male
  Weight: 77.11 kg

DRUGS (5)
  1. APOKYN [Suspect]
     Indication: PARKINSON^S DISEASE
  2. CARBIDOPA-LEVODOPA [Concomitant]
  3. SELEGELINE [Concomitant]
  4. AMANTADINE [Concomitant]
  5. ENALAPRIL [Concomitant]

REACTIONS (1)
  - Hypotension [None]
